FAERS Safety Report 21329103 (Version 1)
Quarter: 2022Q3

REPORT INFORMATION
  Report Type: Report from Study
  Country: BR (occurrence: BR)
  Receive Date: 20220913
  Receipt Date: 20220913
  Transmission Date: 20221027
  Serious: Yes (Other)
  Sender: FDA-Public Use
  Company Number: BR-JNJFOC-20220901479

PATIENT

DRUGS (3)
  1. INFLIXIMAB [Suspect]
     Active Substance: INFLIXIMAB
     Indication: Psoriatic arthropathy
     Route: 041
  2. ETANERCEPT [Suspect]
     Active Substance: ETANERCEPT
     Indication: Psoriatic arthropathy
     Route: 065
  3. ADALIMUMAB [Suspect]
     Active Substance: ADALIMUMAB
     Indication: Psoriatic arthropathy
     Route: 065

REACTIONS (19)
  - Pneumonia [Unknown]
  - Dyslipidaemia [Unknown]
  - Swelling [Unknown]
  - Adverse drug reaction [Unknown]
  - Asthenia [Unknown]
  - Rhinitis [Unknown]
  - Sinusitis [Unknown]
  - Injection site reaction [Unknown]
  - Alopecia [Unknown]
  - Headache [Unknown]
  - Influenza [Unknown]
  - Urinary tract infection [Unknown]
  - Nausea [Unknown]
  - Pruritus [Unknown]
  - Dizziness [Unknown]
  - Pyrexia [Unknown]
  - Diarrhoea [Unknown]
  - Rash [Unknown]
  - Drug ineffective [Unknown]
